FAERS Safety Report 13501771 (Version 1)
Quarter: 2017Q2

REPORT INFORMATION
  Report Type: Spontaneous
  Country: CN (occurrence: CN)
  Receive Date: 20170502
  Receipt Date: 20170502
  Transmission Date: 20170830
  Serious: Yes (Other)
  Sender: FDA-Public Use
  Company Number: PHHY2017CN063552

PATIENT
  Age: 36 Year
  Sex: Female

DRUGS (2)
  1. ACLASTA [Suspect]
     Active Substance: ZOLEDRONIC ACID
     Indication: OSTEOGENESIS IMPERFECTA
     Dosage: 5 MG, PER YEAR
     Route: 042
     Dates: start: 2009, end: 2015
  2. CALCIUM [Concomitant]
     Active Substance: CALCIUM
     Indication: OSTEOGENESIS IMPERFECTA
     Dosage: 600 MG, QD
     Route: 048

REACTIONS (2)
  - Exposure during pregnancy [Unknown]
  - Premature delivery [Unknown]
